FAERS Safety Report 11180065 (Version 1)
Quarter: 2015Q2

REPORT INFORMATION
  Report Type: Spontaneous
  Country: US (occurrence: None)
  Receive Date: 20150610
  Receipt Date: 20150610
  Transmission Date: 20150821
  Serious: Yes (Hospitalization)
  Sender: FDA-Public Use
  Company Number: None

PATIENT
  Age: 46 Year
  Sex: Female
  Weight: 48.7 kg

DRUGS (6)
  1. PENCICLOVIR [Concomitant]
     Active Substance: PENCICLOVIR
  2. HEPARIN [Concomitant]
     Active Substance: HEPARIN SODIUM
  3. BEVACIZUMAB (RHUMAB VEGF) [Suspect]
     Active Substance: BEVACIZUMAB
     Dates: end: 20150514
  4. ACETAMINOPHEN. [Concomitant]
     Active Substance: ACETAMINOPHEN
  5. TOPIRAMATE. [Concomitant]
     Active Substance: TOPIRAMATE
  6. DEXAMETHASONE. [Concomitant]
     Active Substance: DEXAMETHASONE

REACTIONS (3)
  - Hypoaesthesia [None]
  - Hemiparesis [None]
  - Neoplasm progression [None]

NARRATIVE: CASE EVENT DATE: 20150525
